FAERS Safety Report 7721415-X (Version None)
Quarter: 2011Q3

REPORT INFORMATION
  Report Type: 
  Country: None (occurrence: None)
  Receive Date: 20110831
  Receipt Date: 20110420
  Transmission Date: 20111222
  Serious: No
  Sender: FDA-Public Use
  Company Number: US-BAYER-2011-034835

PATIENT
  Sex: Female

DRUGS (1)
  1. MIRENA [Suspect]
     Dosage: 20 ?G, CONT

REACTIONS (4)
  - ABDOMINAL DISTENSION [None]
  - LIPIDS INCREASED [None]
  - BREAST TENDERNESS [None]
  - GASTRITIS [None]
